FAERS Safety Report 10591561 (Version 1)
Quarter: 2014Q4

REPORT INFORMATION
  Report Type: Spontaneous
  Country: US (occurrence: US)
  Receive Date: 20141118
  Receipt Date: 20141118
  Transmission Date: 20150529
  Serious: Yes (Other)
  Sender: FDA-Public Use
  Company Number: US-PFIZER INC-2014315572

PATIENT
  Age: 73 Year
  Sex: Male
  Weight: 113.38 kg

DRUGS (1)
  1. VIAGRA [Suspect]
     Active Substance: SILDENAFIL CITRATE
     Dosage: 50 MG, SINGLE

REACTIONS (2)
  - Painful erection [Unknown]
  - Erection increased [Unknown]
